FAERS Safety Report 8133147-7 (Version None)
Quarter: 2012Q1

REPORT INFORMATION
  Report Type: 
  Country: None (occurrence: None)
  Receive Date: 20120213
  Receipt Date: 20120208
  Transmission Date: 20120608
  Serious: Yes (Hospitalization)
  Sender: FDA-Public Use
  Company Number: PHHY2012FR010607

PATIENT
  Sex: Female

DRUGS (6)
  1. ATARAX [Suspect]
     Dosage: 25 MG, UNK
     Route: 048
  2. GALANTAMINE HYDROBROMIDE [Suspect]
     Indication: DEMENTIA ALZHEIMER'S TYPE
     Dosage: 16 MG, UNK
     Route: 048
     Dates: end: 20111001
  3. MEMANTINE HYDROCHLORIDE [Suspect]
     Dosage: 20 MG, UNK
     Route: 048
     Dates: start: 20100701
  4. ESCITALOPRAM [Suspect]
     Dosage: 5 MG, UNK
     Route: 048
  5. VALSARTAN  AND HYDROCHLOROTHIAZIDE [Suspect]
     Dosage: 1 DF, DAILY
     Route: 048
  6. CADUET [Suspect]
     Dosage: 1 DF, (5 MG AMLOD/ 10 MG ATORVAS)
     Route: 048

REACTIONS (5)
  - CHEST PAIN [None]
  - VERTIGO [None]
  - PULMONARY EMBOLISM [None]
  - OXYGEN SATURATION DECREASED [None]
  - BUNDLE BRANCH BLOCK [None]
